FAERS Safety Report 10779101 (Version 2)
Quarter: 2015Q1

REPORT INFORMATION
  Report Type: Spontaneous
  Country: US (occurrence: US)
  Receive Date: 20150210
  Receipt Date: 20150218
  Transmission Date: 20150721
  Serious: No
  Sender: FDA-Public Use
  Company Number: US-BAYER-2015-019226

PATIENT
  Age: 56 Year
  Sex: Male

DRUGS (1)
  1. BETASERON [Suspect]
     Active Substance: INTERFERON BETA-1B
     Indication: MULTIPLE SCLEROSIS
     Dosage: 0.3 MG, TIW
     Route: 058
     Dates: start: 1997

REACTIONS (1)
  - Scar [Not Recovered/Not Resolved]

NARRATIVE: CASE EVENT DATE: 2013
